FAERS Safety Report 8575264-3 (Version None)
Quarter: 2012Q3

REPORT INFORMATION
  Report Type: 
  Country: None (occurrence: None)
  Receive Date: 20120807
  Receipt Date: 20120731
  Transmission Date: 20120928
  Serious: Yes (Life-Threatening, Other)
  Sender: FDA-Public Use
  Company Number: NZ-JNJFOC-20120707678

PATIENT
  Sex: Male
  Weight: 80 kg

DRUGS (4)
  1. REMICADE [Suspect]
     Dosage: 5TH DOSE
     Route: 042
  2. OMEPRAZOLE [Concomitant]
     Route: 065
  3. REMICADE [Suspect]
     Route: 042
  4. REMICADE [Suspect]
     Indication: COLITIS ULCERATIVE
     Dosage: 4TH DOSE
     Route: 042

REACTIONS (8)
  - IMMUNE SYSTEM DISORDER [None]
  - PNEUMONITIS [None]
  - MYALGIA [None]
  - HEPATIC FUNCTION ABNORMAL [None]
  - CARDIAC TAMPONADE [None]
  - PYREXIA [None]
  - ARTHRALGIA [None]
  - PERICARDIAL EFFUSION [None]
